FAERS Safety Report 4429331-6 (Version None)
Quarter: 2004Q3

REPORT INFORMATION
  Report Type: 
  Country: None (occurrence: None)
  Receive Date: 20040816
  Receipt Date: 20040803
  Transmission Date: 20050211
  Serious: Yes (Death, Hospitalization, Other)
  Sender: FDA-Public Use
  Company Number: USA-2003-0010586

PATIENT
  Age: 52 Year
  Sex: Male
  Weight: 114.3 kg

DRUGS (16)
  1. OXYCONTIN [Suspect]
     Indication: PAIN
     Dosage: 20 MG, BID, ORAL; SEE IMAGE
     Route: 048
  2. VICODIN [Concomitant]
  3. REMERON [Concomitant]
  4. SOMA [Concomitant]
  5. XANAX [Concomitant]
  6. OXYCONTIN [Suspect]
     Indication: PAIN
     Dosage: 20 MG, BID, ORAL
     Route: 048
  7. VICODIN [Concomitant]
  8. REMERON [Concomitant]
  9. SOMA [Concomitant]
  10. XANAX [Concomitant]
  11. PERCOGESIC (PHENYLTOLOXAMINE CITRATE) [Concomitant]
  12. TYLENOL [Concomitant]
  13. PRILOSEC [Concomitant]
  14. ASCRIPTIN (ALUMINIUM HYDROXIDE, MAGNESIUM HYDROXIDE) [Concomitant]
  15. PLAVIX [Concomitant]
  16. NITRO PATCH (GLYCERYL TRINITRATE) [Concomitant]

REACTIONS (28)
  - ANXIETY [None]
  - BACK PAIN [None]
  - CARDIOMEGALY [None]
  - CHEST DISCOMFORT [None]
  - CHRONIC OBSTRUCTIVE AIRWAYS DISEASE [None]
  - CORONARY ARTERY ATHEROSCLEROSIS [None]
  - DECREASED APPETITE [None]
  - DEPRESSION [None]
  - DIFFICULTY IN WALKING [None]
  - DRUG ABUSER [None]
  - DRUG DEPENDENCE [None]
  - DYSPNOEA [None]
  - EMOTIONAL DISTRESS [None]
  - FALL [None]
  - HAEMOPTYSIS [None]
  - HYPOAESTHESIA [None]
  - INADEQUATE ANALGESIA [None]
  - INSOMNIA [None]
  - LETHARGY [None]
  - NIGHT SWEATS [None]
  - OBESITY [None]
  - OVERDOSE [None]
  - PAIN [None]
  - PAIN IN EXTREMITY [None]
  - PARAESTHESIA [None]
  - PNEUMONIA [None]
  - RESPIRATORY TRACT CONGESTION [None]
  - TROPONIN INCREASED [None]
